FAERS Safety Report 17727589 (Version 2)
Quarter: 2020Q2

REPORT INFORMATION
  Report Type: Report from Study
  Country: US (occurrence: US)
  Receive Date: 20200430
  Receipt Date: 20200602
  Transmission Date: 20200714
  Serious: No
  Sender: FDA-Public Use
  Company Number: NVSC2020US116105

PATIENT
  Age: 42 Year
  Sex: Female

DRUGS (2)
  1. MAYZENT [Suspect]
     Active Substance: SIPONIMOD
     Indication: MULTIPLE SCLEROSIS
     Dosage: 2 MG, QD
     Route: 048
     Dates: start: 20190801
  2. MAYZENT [Suspect]
     Active Substance: SIPONIMOD
     Dosage: UNK UNK, QD
     Route: 048
     Dates: start: 20190812

REACTIONS (6)
  - Back pain [Unknown]
  - Chest pain [Unknown]
  - Nasal congestion [Unknown]
  - Hot flush [Unknown]
  - Lacrimation increased [Unknown]
  - Headache [Unknown]

NARRATIVE: CASE EVENT DATE: 20190812
